FAERS Safety Report 18382998 (Version 1)
Quarter: 2020Q4

REPORT INFORMATION
  Report Type: Spontaneous
  Country: RU (occurrence: RU)
  Receive Date: 20201014
  Receipt Date: 20201014
  Transmission Date: 20210114
  Serious: Yes (Other)
  Sender: FDA-Public Use
  Company Number: RU-BAYER-2020-198032

PATIENT
  Sex: Male

DRUGS (4)
  1. ADEMPAS [Suspect]
     Active Substance: RIOCIGUAT
  2. OPSUMIT [Suspect]
     Active Substance: MACITENTAN
     Indication: PULMONARY ARTERIAL HYPERTENSION
  3. VENTAVIS [Suspect]
     Active Substance: ILOPROST
     Indication: PULMONARY ARTERIAL HYPERTENSION
     Route: 055
  4. OXYGEN. [Suspect]
     Active Substance: OXYGEN
     Indication: PULMONARY ARTERIAL HYPERTENSION

REACTIONS (3)
  - Swelling [Not Recovered/Not Resolved]
  - Vessel perforation [Not Recovered/Not Resolved]
  - Haemorrhage [Not Recovered/Not Resolved]
